FAERS Safety Report 6499149-1 (Version None)
Quarter: 2009Q4

REPORT INFORMATION
  Report Type: 
  Country: None (occurrence: None)
  Receive Date: 20091215
  Receipt Date: 20091211
  Transmission Date: 20100525
  Serious: Yes (Death, Hospitalization)
  Sender: FDA-Public Use
  Company Number: IT-WYE-H10022909

PATIENT
  Sex: Female
  Weight: 44 kg

DRUGS (2)
  1. GEMTUZUMAB OZOGAMICIN [Suspect]
     Indication: ACUTE MYELOID LEUKAEMIA
     Dosage: 4.5 ACTUAL DOSE GIVEN
     Dates: start: 20090328, end: 20090608
  2. PREDNISOLONE [Concomitant]
     Indication: THROMBOCYTOSIS
     Route: 042
     Dates: start: 20090622, end: 20090623

REACTIONS (2)
  - CEREBRAL ARTERY THROMBOSIS [None]
  - RENAL FAILURE ACUTE [None]
